FAERS Safety Report 10946786 (Version 1)
Quarter: 2015Q1

REPORT INFORMATION
  Report Type: Spontaneous
  Country: US (occurrence: US)
  Receive Date: 20150323
  Receipt Date: 20150323
  Transmission Date: 20150721
  Serious: No
  Sender: FDA-Public Use
  Company Number: US-009507513-1503USA010150

PATIENT
  Sex: Female

DRUGS (1)
  1. CLARITIN [Suspect]
     Active Substance: LORATADINE
     Indication: ALLERGY TO ANIMAL
     Dosage: UNK, UNKNOWN
     Route: 048

REACTIONS (3)
  - Wheezing [Not Recovered/Not Resolved]
  - Sinus congestion [Not Recovered/Not Resolved]
  - Drug ineffective [Unknown]
